FAERS Safety Report 11022506 (Version 3)
Quarter: 2015Q2

REPORT INFORMATION
  Report Type: Spontaneous
  Country: US (occurrence: US)
  Receive Date: 20150413
  Receipt Date: 20150511
  Transmission Date: 20150821
  Serious: Yes (Other)
  Sender: FDA-Public Use
  Company Number: US-PERRIGO-15US003899

PATIENT
  Age: 41 Year
  Sex: Female
  Weight: 53.61 kg

DRUGS (2)
  1. SYNTHROID [Concomitant]
     Active Substance: LEVOTHYROXINE SODIUM
     Indication: HYPOTHYROIDISM
     Dosage: UNK
     Route: 065
     Dates: start: 1994
  2. GUAIFENESIN 600 MG 498 [Suspect]
     Active Substance: GUAIFENESIN
     Indication: INCREASED UPPER AIRWAY SECRETION
     Dosage: 600 MG, SINGLE
     Route: 048
     Dates: start: 20150221, end: 20150221

REACTIONS (6)
  - Oesophageal disorder [Recovering/Resolving]
  - Foreign body [Recovered/Resolved]
  - Dysphagia [Recovered/Resolved]
  - Speech disorder [Recovering/Resolving]
  - Erosive oesophagitis [Unknown]
  - Oropharyngeal pain [Recovered/Resolved]

NARRATIVE: CASE EVENT DATE: 20150221
